FAERS Safety Report 8537755-0 (Version None)
Quarter: 2012Q3

REPORT INFORMATION
  Report Type: 
  Country: None (occurrence: None)
  Receive Date: 20120725
  Receipt Date: 20120713
  Transmission Date: 20120928
  Serious: Yes (Other)
  Sender: FDA-Public Use
  Company Number: US-MYLANLABS-2012S1013150

PATIENT
  Age: 57 Year
  Sex: Female
  Weight: 41.73 kg

DRUGS (15)
  1. ZANTAC [Concomitant]
  2. FOLIC ACID [Concomitant]
  3. EVOXAC [Concomitant]
  4. LASIX [Concomitant]
  5. MARINOL /00003301/ [Concomitant]
  6. MORPHINE SULFATE [Concomitant]
  7. XANAX [Concomitant]
  8. CARDIZEM [Concomitant]
  9. POTASSIUM CHLORIDE [Concomitant]
  10. PHENOBARBITAL TAB [Concomitant]
  11. VITAMIN TAB [Concomitant]
  12. ESTRADIOL [Concomitant]
  13. SYNTHROID [Concomitant]
  14. FENTANYL-100 [Suspect]
     Indication: FIBROMYALGIA
     Dosage: Q48H
     Route: 062
  15. NEXIUM [Concomitant]

REACTIONS (10)
  - DRUG INEFFECTIVE [None]
  - DYSPNOEA [None]
  - TACHYCARDIA [None]
  - SOMNOLENCE [None]
  - HEMIPARESIS [None]
  - TOXICITY TO VARIOUS AGENTS [None]
  - PAIN [None]
  - PARAESTHESIA [None]
  - COMPLEX PARTIAL SEIZURES [None]
  - HYPERHIDROSIS [None]
